FAERS Safety Report 24088173 (Version 5)
Quarter: 2024Q3

REPORT INFORMATION
  Report Type: Spontaneous
  Country: US (occurrence: US)
  Receive Date: 20240715
  Receipt Date: 20240822
  Transmission Date: 20241016
  Serious: Yes (Hospitalization, Other)
  Sender: AMGEN
  Company Number: US-AMGEN-USASP2024139295

PATIENT
  Age: 54 Year
  Sex: Female

DRUGS (1)
  1. TEPEZZA [Suspect]
     Active Substance: TEPROTUMUMAB-TRBW
     Indication: Endocrine ophthalmopathy
     Dosage: 1 DOSAGE FORM, Q3WK (FOR 8 INFUSIONS)
     Route: 042
     Dates: start: 20240620

REACTIONS (5)
  - Seizure [Unknown]
  - Endocrine ophthalmopathy [Not Recovered/Not Resolved]
  - Ocular hyperaemia [Not Recovered/Not Resolved]
  - Dry eye [Unknown]
  - Tinnitus [Unknown]

NARRATIVE: CASE EVENT DATE: 20240101
